FAERS Safety Report 4606996-7 (Version None)
Quarter: 2005Q1

REPORT INFORMATION
  Report Type: 
  Country: None (occurrence: None)
  Receive Date: 20050309
  Receipt Date: 20050217
  Transmission Date: 20050727
  Serious: Yes (Hospitalization)
  Sender: FDA-Public Use
  Company Number: USA040669909

PATIENT
  Age: 58 Year
  Sex: Female

DRUGS (9)
  1. FORTEO [Suspect]
     Indication: OSTEOPOROSIS
     Dates: start: 20040603
  2. CORTISONE ACETATE [Concomitant]
  3. SYNTHROID [Concomitant]
  4. DDAVP [Concomitant]
  5. CORTEF (HYDROCORTISONE CIPIONATE) [Concomitant]
  6. ZYRTEC [Concomitant]
  7. ALLERGY SHOT [Concomitant]
  8. CITRACAL (CALCIUM CITRATE) [Concomitant]
  9. VITAMINS [Concomitant]

REACTIONS (11)
  - ARTHRALGIA [None]
  - ARTHROPATHY [None]
  - ASTHENIA [None]
  - BACK PAIN [None]
  - CALCINOSIS [None]
  - GAIT DISTURBANCE [None]
  - MEDICAL DEVICE COMPLICATION [None]
  - NECK INJURY [None]
  - NECK PAIN [None]
  - PAIN IN EXTREMITY [None]
  - PARAESTHESIA [None]
